FAERS Safety Report 23637279 (Version 1)
Quarter: 2024Q1

REPORT INFORMATION
  Report Type: Spontaneous
  Country: CN (occurrence: None)
  Receive Date: 20240315
  Receipt Date: 20240315
  Transmission Date: 20240409
  Serious: Yes (Hospitalization, Other)
  Sender: FDA-Public Use
  Company Number: 2024A061370

PATIENT
  Age: 12539 Day
  Sex: Female

DRUGS (1)
  1. FULVESTRANT [Suspect]
     Active Substance: FULVESTRANT
     Indication: Targeted cancer therapy
     Route: 030
     Dates: start: 20240105, end: 20240105

REACTIONS (4)
  - Skin ulcer [Recovering/Resolving]
  - Injection site erythema [Recovering/Resolving]
  - Injection site swelling [Recovering/Resolving]
  - Injection site infection [Unknown]

NARRATIVE: CASE EVENT DATE: 20240201
